FAERS Safety Report 17018416 (Version 3)
Quarter: 2019Q4

REPORT INFORMATION
  Report Type: Spontaneous
  Country: US (occurrence: US)
  Receive Date: 20191111
  Receipt Date: 20191128
  Transmission Date: 20200122
  Serious: No
  Sender: FDA-Public Use
  Company Number: US-AMGEN-USASP2019185794

PATIENT
  Age: 62 Year
  Sex: Female

DRUGS (6)
  1. NEULASTA [Suspect]
     Active Substance: PEGFILGRASTIM
     Dosage: 6 MILLIGRAM, Q3WK
     Route: 058
  2. NEULASTA [Suspect]
     Active Substance: PEGFILGRASTIM
     Indication: PRODUCT USED FOR UNKNOWN INDICATION
     Dosage: 6 MILLIGRAM, Q3WK
     Route: 058
  3. TAXOTERE [Concomitant]
     Active Substance: DOCETAXEL
     Indication: BREAST CANCER
     Dosage: UNK UNK, Q3WK
     Route: 065
  4. CARBO [CARBOPLATIN] [Concomitant]
     Indication: BREAST CANCER
     Dosage: UNK UNK, Q3WK
     Route: 065
  5. HERCEPTIN [Concomitant]
     Active Substance: TRASTUZUMAB
     Indication: BREAST CANCER
     Dosage: UNK UNK, Q3WK
     Route: 065
  6. PERJETA [Concomitant]
     Active Substance: PERTUZUMAB
     Indication: BREAST CANCER
     Dosage: UNK UNK, Q3WK
     Route: 065

REACTIONS (1)
  - Drug delivery system malfunction [Unknown]

NARRATIVE: CASE EVENT DATE: 201911
